FAERS Safety Report 25554159 (Version 1)
Quarter: 2025Q3

REPORT INFORMATION
  Report Type: Spontaneous
  Country: EU (occurrence: None)
  Receive Date: 20250714
  Receipt Date: 20250714
  Transmission Date: 20251020
  Serious: No
  Sender: FDA-CTU
  Company Number: None

PATIENT
  Age: 60 Year
  Sex: Female
  Weight: 89 kg

DRUGS (3)
  1. MOUNJARO [Suspect]
     Active Substance: TIRZEPATIDE
     Indication: Insulin resistance
     Dosage: OTHER QUANTITY : 4 INJECTION(S);?OTHER FREQUENCY : ONCE A WEEK;?OTHER ROUTE : INJECTED SUBCUTANEOUSLY;?
     Route: 050
  2. PITAVASTATIN [Concomitant]
     Active Substance: PITAVASTATIN
  3. NOLVADEX [Concomitant]
     Active Substance: TAMOXIFEN CITRATE

REACTIONS (6)
  - Pain [None]
  - Myalgia [None]
  - Inflammation [None]
  - Back pain [None]
  - Neuralgia [None]
  - Sleep disorder [None]
